FAERS Safety Report 14268205 (Version 1)
Quarter: 2017Q4

REPORT INFORMATION
  Report Type: Spontaneous
  Country: US (occurrence: US)
  Receive Date: 20171211
  Receipt Date: 20171211
  Transmission Date: 20180321
  Serious: Yes (Hospitalization, Other)
  Sender: FDA-Public Use
  Company Number: US-009507513-1101USA01552

PATIENT
  Sex: Female
  Weight: 79.38 kg

DRUGS (10)
  1. FOSAMAX [Suspect]
     Active Substance: ALENDRONATE SODIUM
     Indication: OSTEOPOROSIS
     Dosage: 10 MG, QD
     Route: 048
     Dates: start: 1995
  2. FOSAMAX [Suspect]
     Active Substance: ALENDRONATE SODIUM
     Indication: OSTEOPOROSIS
     Dosage: 70 MG, QW
     Route: 048
     Dates: start: 20060403, end: 200801
  3. FOSAMAX [Suspect]
     Active Substance: ALENDRONATE SODIUM
     Indication: OSTEOPENIA
  4. FOSAMAX [Suspect]
     Active Substance: ALENDRONATE SODIUM
     Indication: OSTEOPENIA
  5. ALENDRONATE SODIUM. [Suspect]
     Active Substance: ALENDRONATE SODIUM
     Indication: OSTEOPENIA
  6. CALCIUM (UNSPECIFIED) [Concomitant]
     Active Substance: CALCIUM
     Indication: PRODUCT USED FOR UNKNOWN INDICATION
     Dosage: UNK
     Route: 065
     Dates: start: 1995
  7. SYNTHROID [Concomitant]
     Active Substance: LEVOTHYROXINE SODIUM
     Indication: HYPOTHYROIDISM
     Dosage: 0.05 MG, QD
     Route: 065
     Dates: start: 19920101, end: 20101201
  8. ALENDRONATE SODIUM. [Suspect]
     Active Substance: ALENDRONATE SODIUM
     Indication: OSTEOPOROSIS
     Dosage: 70 MG, QW
     Route: 048
     Dates: start: 20080209, end: 201011
  9. ALENDRONATE SODIUM. [Suspect]
     Active Substance: ALENDRONATE SODIUM
     Indication: OSTEOPENIA
  10. ALENDRONATE SODIUM. [Suspect]
     Active Substance: ALENDRONATE SODIUM
     Indication: OSTEOPOROSIS
     Dosage: 70 MG, QW
     Route: 048
     Dates: start: 20080523, end: 200808

REACTIONS (60)
  - Uterine disorder [Unknown]
  - Dry mouth [Unknown]
  - Hyperphagia [Unknown]
  - Compression fracture [Unknown]
  - Tonsillar disorder [Unknown]
  - Facet joint syndrome [Unknown]
  - Cervical spinal stenosis [Unknown]
  - Arteriosclerosis [Not Recovered/Not Resolved]
  - Patellofemoral pain syndrome [Unknown]
  - Arthropathy [Unknown]
  - Spinal compression fracture [Unknown]
  - Chronic obstructive pulmonary disease [Unknown]
  - Dental caries [Unknown]
  - Weight increased [Unknown]
  - Haemorrhoids [Unknown]
  - Helicobacter infection [Unknown]
  - Fall [Unknown]
  - Chest injury [Unknown]
  - Pain [Unknown]
  - Lumbar spinal stenosis [Unknown]
  - Oesophagitis [Not Recovered/Not Resolved]
  - Tooth fracture [Unknown]
  - Varicose vein [Unknown]
  - Inflammation [Unknown]
  - Appendix disorder [Unknown]
  - Arthritis [Unknown]
  - Tendon disorder [Unknown]
  - Contusion [Unknown]
  - Rotator cuff syndrome [Unknown]
  - Dyspepsia [Unknown]
  - Obesity [Unknown]
  - Tooth fracture [Unknown]
  - Femur fracture [Unknown]
  - Spinal osteoarthritis [Not Recovered/Not Resolved]
  - Oropharyngeal pain [Unknown]
  - Back disorder [Unknown]
  - Skin abrasion [Unknown]
  - Periodontitis [Unknown]
  - Polyp [Unknown]
  - Fall [Unknown]
  - Upper-airway cough syndrome [Unknown]
  - Osteoarthritis [Unknown]
  - Scoliosis [Unknown]
  - Varicose vein [Unknown]
  - Limb injury [Unknown]
  - Diverticulum intestinal [Not Recovered/Not Resolved]
  - Hypersomnia [Unknown]
  - Meniscus injury [Unknown]
  - Fat tissue increased [Unknown]
  - Asthenia [Unknown]
  - Spinal column stenosis [Unknown]
  - Thoracic vertebral fracture [Unknown]
  - Fall [Unknown]
  - Asthenia [Unknown]
  - Low turnover osteopathy [Unknown]
  - Lower limb fracture [Unknown]
  - Rotator cuff syndrome [Unknown]
  - Gastrooesophageal reflux disease [Unknown]
  - Skin lesion [Unknown]
  - Hiatus hernia [Unknown]

NARRATIVE: CASE EVENT DATE: 1995
